FAERS Safety Report 6593267-5 (Version None)
Quarter: 2010Q1

REPORT INFORMATION
  Report Type: 
  Country: None (occurrence: None)
  Receive Date: 20100218
  Receipt Date: 20100218
  Transmission Date: 20100710
  Serious: Yes (Life-Threatening)
  Sender: FDA-Public Use
  Company Number: None

PATIENT
  Age: 58 Year
  Sex: Female
  Weight: 78.6 kg

DRUGS (1)
  1. LORATADINE [Suspect]
     Indication: DIABETES MELLITUS
     Dosage: 10 MG PM PO
     Route: 048
     Dates: start: 20091014, end: 20091020

REACTIONS (1)
  - HYPOGLYCAEMIA [None]
